FAERS Safety Report 7567911-X (Version None)
Quarter: 2011Q2

REPORT INFORMATION
  Report Type: 
  Country: None (occurrence: None)
  Receive Date: 20110623
  Receipt Date: 20110609
  Transmission Date: 20111010
  Serious: Yes (Other)
  Sender: FDA-Public Use
  Company Number: IT-CELGENEUS-083-21880-11061358

PATIENT
  Sex: Female

DRUGS (3)
  1. REVLIMID [Suspect]
     Dosage: 10 MILLIGRAM
     Route: 048
  2. REVLIMID [Suspect]
     Dosage: 10 MILLIGRAM
     Route: 048
     Dates: start: 20100101
  3. RED BLOOD CELLS [Concomitant]
     Route: 051

REACTIONS (3)
  - CARDIAC FAILURE [None]
  - CARDIOPULMONARY FAILURE [None]
  - RENAL IMPAIRMENT [None]
